FAERS Safety Report 23681491 (Version 1)
Quarter: 2024Q1

REPORT INFORMATION
  Report Type: Spontaneous
  Country: SE (occurrence: SE)
  Receive Date: 20240328
  Receipt Date: 20240328
  Transmission Date: 20240410
  Serious: Yes (Other)
  Sender: FDA-Public Use
  Company Number: None

PATIENT
  Age: 88 Year
  Sex: Female

DRUGS (2)
  1. PRAMIPEXOLE [Suspect]
     Active Substance: PRAMIPEXOLE\PRAMIPEXOLE DIHYDROCHLORIDE
     Indication: Formication
     Dosage: 0.5 TABLET IN TEH AFTERNOON AND 0,5 TABLETT BEFORE BEDTIME FOR FORMICATIONS
     Route: 048
  2. HERBALS\KARAYA GUM [Suspect]
     Active Substance: HERBALS\KARAYA GUM
     Indication: Product used for unknown indication
     Dosage: FORM OF ADMIN: GRANULES IN SACHET?1-2 DOSING SACHETS ARE ADMINISTERED 1-3 TIMES PER 24 HOURS. THE DO
     Route: 048

REACTIONS (3)
  - Drug interaction [Recovering/Resolving]
  - Formication [Recovering/Resolving]
  - Drug ineffective [Recovering/Resolving]

NARRATIVE: CASE EVENT DATE: 20240209
